FAERS Safety Report 17262698 (Version 4)
Quarter: 2020Q2

REPORT INFORMATION
  Report Type: Report from Study
  Country: US (occurrence: US)
  Receive Date: 20200113
  Receipt Date: 20200602
  Transmission Date: 20200713
  Serious: No
  Sender: FDA-Public Use
  Company Number: NVSC2020US005269

PATIENT
  Sex: Female

DRUGS (2)
  1. COSENTYX [Suspect]
     Active Substance: SECUKINUMAB
     Indication: PSORIASIS
     Dosage: 300 MG, QW
     Route: 058
  2. COSENTYX [Suspect]
     Active Substance: SECUKINUMAB
     Indication: PSORIASIS
     Route: 058

REACTIONS (9)
  - Finger deformity [Unknown]
  - Erythema [Unknown]
  - Arthropathy [Unknown]
  - Skin fissures [Unknown]
  - Fingerprint loss [Unknown]
  - Rash macular [Unknown]
  - Skin exfoliation [Unknown]
  - Peripheral swelling [Unknown]
  - Drug ineffective [Unknown]
